FAERS Safety Report 14295540 (Version 3)
Quarter: 2018Q1

REPORT INFORMATION
  Report Type: Spontaneous
  Country: US (occurrence: US)
  Receive Date: 20171218
  Receipt Date: 20180223
  Transmission Date: 20180509
  Serious: No
  Sender: FDA-Public Use
  Company Number: US-PFIZER INC-2017536228

PATIENT
  Age: 74 Year
  Sex: Male

DRUGS (1)
  1. ATROPINE SULFATE/DIPHENOXYLATE HYDROCHLORIDE [Suspect]
     Active Substance: ATROPINE SULFATE\DIPHENOXYLATE HYDROCHLORIDE
     Indication: DIARRHOEA
     Dosage: UNK, DAILY [ATROPINE SULFATE: 0.025 MG/DIPHENOXYLATE HCL: 2.5 MG] (1 TO 2 TAB, 2 TO4 TIMES DAILY]

REACTIONS (2)
  - Drug ineffective [Unknown]
  - Product use issue [Unknown]
